FAERS Safety Report 5225005-2 (Version None)
Quarter: 2007Q1

REPORT INFORMATION
  Report Type: 
  Country: None (occurrence: None)
  Receive Date: 20070126
  Receipt Date: 20070115
  Transmission Date: 20070707
  Serious: Yes (Hospitalization)
  Sender: FDA-Public Use
  Company Number: HQWYE777118JAN07

PATIENT
  Age: 13 Year
  Sex: Female

DRUGS (3)
  1. EFFEXOR XR [Suspect]
     Dosage: OVERDOSE AMOUNT 262.5, ORAL
     Route: 048
     Dates: start: 20010801, end: 20010801
  2. ALPRAZOLAM [Suspect]
     Dosage: OVERDOSE AMOUNT 5MG ORAL
     Route: 048
     Dates: start: 20010801, end: 20010801
  3. NOCTRAN 10 (ACEPROMAZINE/ACEPROMETAZINE/CLORAZEPATE DIPOTASSIUM) [Suspect]
     Dosage: OVERDOSE AMOUNT 80 MG, ORAL
     Route: 048
     Dates: start: 20010801, end: 20010801

REACTIONS (3)
  - AGITATION [None]
  - COMA [None]
  - MULTIPLE DRUG OVERDOSE [None]
